FAERS Safety Report 8328148-X (Version None)
Quarter: 2012Q2

REPORT INFORMATION
  Report Type: 
  Country: None (occurrence: None)
  Receive Date: 20120502
  Receipt Date: 20120430
  Transmission Date: 20120825
  Serious: Yes (Other)
  Sender: FDA-Public Use
  Company Number: PHEH2011US011269

PATIENT
  Sex: Female

DRUGS (3)
  1. ANTIBIOTICS [Concomitant]
     Dosage: UNK UKN, UNK
  2. CELEBREX [Concomitant]
     Dosage: UNK UKN, UNK
  3. RECLAST [Suspect]
     Route: 042
     Dates: start: 20101201

REACTIONS (4)
  - PAIN IN JAW [None]
  - OSTEONECROSIS OF JAW [None]
  - TOOTHACHE [None]
  - NEURALGIA [None]
